FAERS Safety Report 25754829 (Version 1)
Quarter: 2025Q3

REPORT INFORMATION
  Report Type: Spontaneous
  Country: EU (occurrence: EU)
  Receive Date: 20250903
  Receipt Date: 20250903
  Transmission Date: 20251020
  Serious: Yes (Hospitalization)
  Sender: CHEPLAPHARM
  Company Number: None

PATIENT
  Age: 66 Year
  Sex: Female
  Weight: 83 kg

DRUGS (18)
  1. CLONAZEPAM [Suspect]
     Active Substance: CLONAZEPAM
     Indication: Paraparesis
     Dosage: DAILY DOSE: 4 DROP
     Route: 048
  2. ULTOMIRIS [Suspect]
     Active Substance: RAVULIZUMAB-CWVZ
     Indication: Neuromyelitis optica spectrum disorder
     Route: 042
     Dates: start: 20240926, end: 20250728
  3. DULOXETINE [Suspect]
     Active Substance: DULOXETINE
     Indication: Neuralgia
     Dosage: DAILY DOSE: 60 MILLIGRAM
     Route: 048
  4. LYRICA [Suspect]
     Active Substance: PREGABALIN
     Indication: Neuralgia
     Dosage: DAILY DOSE: 450 MILLIGRAM
     Route: 048
  5. BACLOFEN [Suspect]
     Active Substance: BACLOFEN
     Indication: Paraparesis
     Dosage: DAILY DOSE: 75 MILLIGRAM
     Route: 048
  6. ALFUZOSIN HYDROCHLORIDE [Suspect]
     Active Substance: ALFUZOSIN HYDROCHLORIDE
     Indication: Bladder sphincter atony
     Dosage: DAILY DOSE: 10 MILLIGRAM
     Route: 048
  7. ATORVASTATIN [Suspect]
     Active Substance: ATORVASTATIN
     Indication: Cardiovascular event prophylaxis
     Dosage: DAILY DOSE: 40 MILLIGRAM
     Route: 048
  8. LEVOTHYROXINE [Suspect]
     Active Substance: LEVOTHYROXINE
     Indication: Hypothyroidism
     Dosage: DAILY DOSE: 112 MICROGRAM
     Route: 048
  9. CYANOCOBALAMIN [Suspect]
     Active Substance: CYANOCOBALAMIN
     Indication: Vitamin supplementation
     Dosage: DAILY DOSE: 1 DOSAGE FORM
     Route: 048
  10. PENICILLIN V [Suspect]
     Active Substance: PENICILLIN V
     Indication: Prophylaxis
     Dosage: DAILY DOSE: 2 DOSAGE FORM
     Route: 048
  11. CHOLECALCIFEROL [Suspect]
     Active Substance: CHOLECALCIFEROL
     Indication: Prophylaxis
     Dosage: DAILY DOSE: 1 DOSAGE FORM
     Route: 048
  12. ACETAMINOPHEN [Suspect]
     Active Substance: ACETAMINOPHEN
     Indication: Pain
     Route: 048
  13. POLYETHYLENE GLYCOLS [Suspect]
     Active Substance: POLYETHYLENE GLYCOLS
     Indication: Constipation
     Dosage: DAILY DOSE: 1 DOSAGE FORM
     Route: 048
  14. PLAVIX [Concomitant]
     Active Substance: CLOPIDOGREL BISULFATE
     Indication: Cardiovascular event prophylaxis
     Dosage: DAILY DOSE: 75 MILLIGRAM
     Route: 048
  15. RITUXIMAB [Concomitant]
     Active Substance: RITUXIMAB
  16. TOCILIZUMAB [Concomitant]
     Active Substance: TOCILIZUMAB
  17. ECULIZUMAB [Concomitant]
     Active Substance: ECULIZUMAB
  18. RAVULIZUMAB [Concomitant]
     Active Substance: RAVULIZUMAB
     Dates: start: 20240926

REACTIONS (1)
  - Ischaemic stroke [Recovering/Resolving]

NARRATIVE: CASE EVENT DATE: 20250806
